FAERS Safety Report 12524593 (Version 1)
Quarter: 2016Q3

REPORT INFORMATION
  Report Type: Spontaneous
  Country: IL (occurrence: IL)
  Receive Date: 20160704
  Receipt Date: 20160704
  Transmission Date: 20161109
  Serious: Yes (Life-Threatening)
  Sender: FDA-Public Use
  Company Number: IL-ASTRAZENECA-2016SE70964

PATIENT
  Age: 62 Year
  Sex: Male

DRUGS (7)
  1. TRITACE [Concomitant]
     Active Substance: RAMIPRIL
  2. CRESTOR [Suspect]
     Active Substance: ROSUVASTATIN CALCIUM
     Route: 048
     Dates: start: 20160329
  3. LOSEC [Concomitant]
     Active Substance: OMEPRAZOLE
  4. CARDILOC [Concomitant]
     Active Substance: BISOPROLOL FUMARATE
  5. PLAVIX [Concomitant]
     Active Substance: CLOPIDOGREL BISULFATE
  6. ASPIRIN. [Concomitant]
     Active Substance: ASPIRIN
  7. VECTOR [Concomitant]

REACTIONS (6)
  - Dyspnoea [Unknown]
  - Lip swelling [Unknown]
  - Hemiparesis [Unknown]
  - Swelling face [Unknown]
  - Asthenia [Unknown]
  - Dizziness [Unknown]

NARRATIVE: CASE EVENT DATE: 20160329
